FAERS Safety Report 20526096 (Version 1)
Quarter: 2022Q1

REPORT INFORMATION
  Report Type: Spontaneous
  Country: JP (occurrence: JP)
  Receive Date: 20220228
  Receipt Date: 20220228
  Transmission Date: 20220423
  Serious: Yes (Other)
  Sender: FDA-Public Use
  Company Number: JP-PFIZER INC-202200292794

PATIENT
  Age: 6 Decade
  Sex: Female

DRUGS (2)
  1. PACLITAXEL [Suspect]
     Active Substance: PACLITAXEL
     Indication: Breast cancer
     Dosage: 100 MG
     Route: 042
  2. ALCOHOL [Suspect]
     Active Substance: ALCOHOL

REACTIONS (7)
  - Depressed level of consciousness [Unknown]
  - Hot flush [Unknown]
  - Vomiting [Unknown]
  - Feeling hot [Unknown]
  - Hyperhidrosis [Unknown]
  - Reaction to excipient [Unknown]
  - Alcohol intolerance [Unknown]
